FAERS Safety Report 11293213 (Version 4)
Quarter: 2015Q3

REPORT INFORMATION
  Report Type: Spontaneous
  Country: US (occurrence: US)
  Receive Date: 20150722
  Receipt Date: 20150722
  Transmission Date: 20151125
  Serious: Yes (Other)
  Sender: FDA-Public Use
  Company Number: US-SUPERNUS PHARMACEUTICALS, INC.-2015SUP00071

PATIENT
  Age: 7 Year
  Sex: Male

DRUGS (1)
  1. TOPIRAMATE. [Suspect]
     Active Substance: TOPIRAMATE
     Indication: MIGRAINE
     Dosage: 25 MG, 1X/DAY

REACTIONS (4)
  - Myopia [Recovered/Resolved]
  - Retinal disorder [Recovered/Resolved]
  - Toxicity to various agents [Recovered/Resolved]
  - Flat anterior chamber of eye [Recovered/Resolved]
